FAERS Safety Report 12988366 (Version 1)
Quarter: 2016Q4

REPORT INFORMATION
  Report Type: Spontaneous
  Country: None (occurrence: US)
  Receive Date: 20161130
  Receipt Date: 20161130
  Transmission Date: 20170207
  Serious: Yes (Hospitalization)
  Sender: FDA-Public Use
  Company Number: US-ALLERGAN-1674019US

PATIENT
  Age: 2 Year
  Sex: Female

DRUGS (1)
  1. AQUADEKS PEDIATRIC LIQUID [Suspect]
     Active Substance: MINERALS\VITAMINS
     Indication: CYSTIC FIBROSIS
     Dosage: 2 ML, UNK
     Route: 048
     Dates: start: 20141023

REACTIONS (1)
  - Lung infection [Unknown]

NARRATIVE: CASE EVENT DATE: 20160517
